FAERS Safety Report 6736383-7 (Version None)
Quarter: 2010Q2

REPORT INFORMATION
  Report Type: 
  Country: None (occurrence: None)
  Receive Date: 20100521
  Receipt Date: 20100518
  Transmission Date: 20101027
  Serious: Yes (Disabling, Other)
  Sender: FDA-Public Use
  Company Number: US-MERCK-1002USA03056

PATIENT
  Age: 72 Year
  Sex: Female

DRUGS (3)
  1. FOSAMAX [Suspect]
     Indication: OSTEOPOROSIS
     Route: 048
     Dates: start: 19980101, end: 20091201
  2. LIPITOR [Concomitant]
     Route: 065
  3. HYDROCHLOROTHIAZIDE [Concomitant]
     Route: 065

REACTIONS (10)
  - ATELECTASIS [None]
  - COMPRESSION FRACTURE [None]
  - EXOSTOSIS [None]
  - FRACTURED COCCYX [None]
  - HEPATIC LESION [None]
  - INTERVERTEBRAL DISC SPACE NARROWING [None]
  - MULTIPLE MYELOMA [None]
  - PANCREATIC DISORDER [None]
  - SPINAL HAEMANGIOMA [None]
  - SPINAL OSTEOARTHRITIS [None]
